FAERS Safety Report 14137777 (Version 2)
Quarter: 2017Q4

REPORT INFORMATION
  Report Type: Spontaneous
  Country: FR (occurrence: FR)
  Receive Date: 20171027
  Receipt Date: 20171201
  Transmission Date: 20180321
  Serious: Yes (Other)
  Sender: FDA-Public Use
  Company Number: FR-JNJFOC-20171031196

PATIENT
  Age: 80 Year
  Sex: Female

DRUGS (3)
  1. ALDACTONE [Concomitant]
     Active Substance: SPIRONOLACTONE
     Route: 065
  2. OMEPRAZOLE. [Concomitant]
     Active Substance: OMEPRAZOLE
     Route: 065
  3. XARELTO [Suspect]
     Active Substance: RIVAROXABAN
     Indication: AORTIC ARTERIOSCLEROSIS
     Route: 048
     Dates: start: 20171004

REACTIONS (2)
  - Product use in unapproved indication [Unknown]
  - Urinary retention [Recovered/Resolved]

NARRATIVE: CASE EVENT DATE: 20171008
